FAERS Safety Report 5934360-7 (Version None)
Quarter: 2008Q4

REPORT INFORMATION
  Report Type: 
  Country: None (occurrence: None)
  Receive Date: 20081029
  Receipt Date: 20081023
  Transmission Date: 20090506
  Serious: Yes (Hospitalization)
  Sender: FDA-Public Use
  Company Number: US-AVENTIS-200816997US

PATIENT
  Sex: Male

DRUGS (1)
  1. CARAC [Suspect]
     Dosage: DOSE: APPLIED TO DORSAL HANDS AND ARMS
     Route: 061
     Dates: start: 20080901

REACTIONS (4)
  - ALOPECIA [None]
  - ANAEMIA [None]
  - OFF LABEL USE [None]
  - PERICARDIAL EFFUSION [None]
